FAERS Safety Report 8416556-8 (Version None)
Quarter: 2012Q2

REPORT INFORMATION
  Report Type: 
  Country: None (occurrence: None)
  Receive Date: 20120606
  Receipt Date: 20120604
  Transmission Date: 20120825
  Serious: Yes (Other)
  Sender: FDA-Public Use
  Company Number: DE-GLAXOSMITHKLINE-D0075271A

PATIENT
  Age: 70 Year
  Sex: Male

DRUGS (2)
  1. TOPIRAMATE [Concomitant]
     Indication: CONVULSION
     Route: 048
  2. PROMACTA [Suspect]
     Route: 048

REACTIONS (2)
  - CONVULSION [None]
  - HYPOAESTHESIA [None]
